FAERS Safety Report 22379601 (Version 1)
Quarter: 2023Q2

REPORT INFORMATION
  Report Type: Spontaneous
  Country: US (occurrence: US)
  Receive Date: 20230529
  Receipt Date: 20230529
  Transmission Date: 20230721
  Serious: No
  Sender: FDA-Public Use
  Company Number: US-TAKEDA-2023TUS051519

PATIENT
  Sex: Male
  Weight: 79 kg

DRUGS (7)
  1. MOTEGRITY [Suspect]
     Active Substance: PRUCALOPRIDE SUCCINATE
     Indication: Irritable bowel syndrome
     Dosage: 2 MILLIGRAM, QD
     Route: 065
  2. MOTEGRITY [Suspect]
     Active Substance: PRUCALOPRIDE SUCCINATE
     Indication: Constipation
  3. EPLERENONE [Concomitant]
     Active Substance: EPLERENONE
     Dosage: UNK
     Route: 065
  4. ALFUZOSIN HYDROCHLORIDE [Concomitant]
     Active Substance: ALFUZOSIN HYDROCHLORIDE
     Dosage: UNK
     Route: 065
  5. SOTALOL [Concomitant]
     Active Substance: SOTALOL
     Dosage: UNK
     Route: 065
  6. ASPIRIN [Concomitant]
     Active Substance: ASPIRIN
     Dosage: UNK
     Route: 065
  7. TORSEMIDE [Concomitant]
     Active Substance: TORSEMIDE
     Dosage: UNK
     Route: 065

REACTIONS (4)
  - Therapeutic product effect decreased [Unknown]
  - Inability to afford medication [Unknown]
  - Product dose omission issue [Unknown]
  - Inappropriate schedule of product administration [Unknown]
